FAERS Safety Report 6750143-2 (Version None)
Quarter: 2010Q2

REPORT INFORMATION
  Report Type: 
  Country: None (occurrence: None)
  Receive Date: 20100601
  Receipt Date: 20100520
  Transmission Date: 20101027
  Serious: Yes (Hospitalization)
  Sender: FDA-Public Use
  Company Number: FR-ELI_LILLY_AND_COMPANY-FR201005005601

PATIENT
  Age: 62 Year
  Sex: Male
  Weight: 100 kg

DRUGS (5)
  1. BYETTA [Suspect]
     Indication: TYPE 2 DIABETES MELLITUS
     Dosage: 10 UG, 2/D
     Route: 058
     Dates: start: 20090301, end: 20100101
  2. METFORMIN HCL [Concomitant]
     Route: 048
     Dates: start: 20090301
  3. AMAREL [Concomitant]
     Indication: TYPE 2 DIABETES MELLITUS
     Dosage: 2 MG, 2/D
     Route: 048
     Dates: start: 20090301
  4. KARDEGIC [Concomitant]
     Indication: PROPHYLAXIS
     Dosage: 75 MG, DAILY (1/D)
     Route: 048
     Dates: start: 20090301
  5. TAHOR [Concomitant]
     Indication: DYSLIPIDAEMIA
     Dosage: 1 G, DAILY (1/D)
     Route: 048

REACTIONS (2)
  - DRY SKIN [None]
  - PSORIASIS [None]
